FAERS Safety Report 4801560-9 (Version None)
Quarter: 2005Q4

REPORT INFORMATION
  Report Type: 
  Country: None (occurrence: None)
  Receive Date: 20051011
  Receipt Date: 20051011
  Transmission Date: 20060501
  Serious: Yes (Hospitalization)
  Sender: FDA-Public Use
  Company Number: None

PATIENT
  Sex: Male
  Weight: 90.7194 kg

DRUGS (1)
  1. HUMIRA 40 ONE SHOT Q 2 WEEKS [Suspect]
     Indication: RHEUMATOID ARTHRITIS
     Dosage: HUMIRA STOPPED IN OCTOBER PERMANENTLY

REACTIONS (2)
  - PULMONARY TUBERCULOSIS [None]
  - TREATMENT NONCOMPLIANCE [None]
